FAERS Safety Report 10229694 (Version 1)
Quarter: 2014Q2

REPORT INFORMATION
  Report Type: Spontaneous
  Country: US (occurrence: US)
  Receive Date: 20140611
  Receipt Date: 20140611
  Transmission Date: 20141212
  Serious: No
  Sender: FDA-Public Use
  Company Number: US-B.I. PHARMACEUTICALS,INC./RIDGEFIELD-2014-BI-24555BP

PATIENT
  Age: 55 Year
  Sex: Female
  Weight: 81 kg

DRUGS (2)
  1. COMBIVENT [Suspect]
     Indication: ASTHMA
     Dosage: DOSE PER APPLICATION:18 MCG / 103 MCG;
     Route: 055
     Dates: start: 2004
  2. ALVESCO [Concomitant]
     Indication: ASTHMA
     Route: 055

REACTIONS (3)
  - Dyspnoea [Recovered/Resolved]
  - Expired product administered [Unknown]
  - Off label use [Unknown]
